FAERS Safety Report 24279605 (Version 1)
Quarter: 2024Q3

REPORT INFORMATION
  Report Type: Spontaneous
  Country: US (occurrence: US)
  Receive Date: 20240904
  Receipt Date: 20240904
  Transmission Date: 20241017
  Serious: Yes (Other)
  Sender: STRIDES
  Company Number: US-STRIDES ARCOLAB LIMITED-2023SP015518

PATIENT

DRUGS (3)
  1. TACROLIMUS [Suspect]
     Active Substance: TACROLIMUS
     Indication: Product used for unknown indication
     Dosage: UNK; PATIENT^S MOTHER RECEIVED TACROLIMUS
     Route: 064
  2. AZATHIOPRINE [Suspect]
     Active Substance: AZATHIOPRINE
     Indication: Product used for unknown indication
     Dosage: UNK; PATIENT^S MOTHER RECEIVED AZATHIOPRINE
     Route: 064
  3. BELATACEPT [Suspect]
     Active Substance: BELATACEPT
     Indication: Product used for unknown indication
     Dosage: UNK; PATIENT^S MOTHER RECEIVED BELATACEPT
     Route: 064

REACTIONS (2)
  - Premature baby [Unknown]
  - Foetal exposure during pregnancy [Unknown]
